FAERS Safety Report 18063284 (Version 1)
Quarter: 2020Q3

REPORT INFORMATION
  Report Type: Spontaneous
  Country: GB (occurrence: GB)
  Receive Date: 20200723
  Receipt Date: 20200723
  Transmission Date: 20201103
  Serious: Yes (Other)
  Sender: FDA-Public Use
  Company Number: GB-BAYER-2019-023700

PATIENT
  Age: 41 Year
  Sex: Female

DRUGS (3)
  1. MIRENA [Suspect]
     Active Substance: LEVONORGESTREL
     Dosage: 20 MCG/24HR, CONTINUOUSLY
     Route: 015
     Dates: start: 20100930, end: 2014
  2. MIRENA [Suspect]
     Active Substance: LEVONORGESTREL
     Dosage: 20 MCG/24HR, CONTINUOUSLY
     Route: 015
     Dates: start: 20141105, end: 20170104
  3. LAMOTRIGINE. [Concomitant]
     Active Substance: LAMOTRIGINE

REACTIONS (13)
  - Post procedural haemorrhage [None]
  - Procedural pain [None]
  - Procedural nausea [None]
  - Temporal lobe epilepsy [None]
  - Malaise [None]
  - Complication of device removal [None]
  - Pelvic discomfort [None]
  - Pelvic discomfort [None]
  - Pelvic pain [None]
  - Mental disorder [None]
  - Device dislocation [None]
  - Genital haemorrhage [None]
  - Device breakage [None]

NARRATIVE: CASE EVENT DATE: 20101001
